FAERS Safety Report 7555985-1 (Version None)
Quarter: 2011Q2

REPORT INFORMATION
  Report Type: 
  Country: None (occurrence: None)
  Receive Date: 20110620
  Receipt Date: 20110617
  Transmission Date: 20111010
  Serious: Yes (Hospitalization)
  Sender: FDA-Public Use
  Company Number: DE-BRISTOL-MYERS SQUIBB COMPANY-15769672

PATIENT
  Age: 69 Year
  Sex: Male
  Weight: 59 kg

DRUGS (17)
  1. FOLSAURE [Concomitant]
     Dates: start: 20110406
  2. SPIRIVA [Concomitant]
     Indication: DYSPNOEA
     Dates: start: 20110406
  3. ONDANSETRON [Concomitant]
     Indication: PROPHYLAXIS
     Dates: start: 20110503, end: 20110508
  4. DEXAMETHASONE [Concomitant]
     Dates: start: 20110503, end: 20110508
  5. CALCIUM EFFERVESCENT TABS [Concomitant]
     Indication: HYPOTHYROIDISM
     Dates: start: 20010101
  6. VITAMIN B-12 [Concomitant]
  7. ALIMTA [Suspect]
     Indication: NON-SMALL CELL LUNG CANCER
     Dosage: RECENT INF:3MAY2011
     Route: 042
     Dates: start: 20110412
  8. DIGIMERCK [Concomitant]
     Indication: HYPERTENSION
     Dates: start: 20080101
  9. CISPLATIN [Suspect]
     Indication: NON-SMALL CELL LUNG CANCER
     Dosage: RECENT INF:3MAY2011
     Route: 042
     Dates: start: 20110412
  10. EUTHYROX [Concomitant]
     Indication: HYPOTHYROIDISM
     Dates: start: 20010101
  11. LORAZEPAM [Concomitant]
     Indication: RESTLESSNESS
     Dates: start: 20110302
  12. EMEND [Concomitant]
     Indication: PROPHYLAXIS
     Dates: start: 20110503, end: 20110508
  13. POTASSIUM CL + SODIUM CL [Concomitant]
     Indication: FLUID REPLACEMENT
     Dates: start: 20110503, end: 20110503
  14. DEXAMETHASONE [Concomitant]
     Indication: PROPHYLAXIS
  15. MAGNESIUM [Concomitant]
     Indication: FLUID REPLACEMENT
  16. DIHYDROTACHYSTEROL [Concomitant]
     Indication: HYPOTHYROIDISM
     Dates: start: 20010101
  17. SOTALOL HCL [Concomitant]
     Indication: HYPOTHYROIDISM
     Dates: start: 20010101

REACTIONS (1)
  - CEREBROVASCULAR ACCIDENT [None]
